FAERS Safety Report 8898148 (Version 1)
Quarter: 2012Q4

REPORT INFORMATION
  Report Type: 
  Country: US (occurrence: US)
  Receive Date: 20121108
  Receipt Date: 20121108
  Transmission Date: 20130627
  Serious: No
  Sender: FDA-Public Use
  Company Number: US-AMGEN-USASP2012034335

PATIENT
  Age: 69 Year
  Sex: Female
  Weight: 106.5 kg

DRUGS (8)
  1. ENBREL [Suspect]
     Indication: PRODUCT USED FOR UNKNOWN INDICATION
     Dosage: 50 mg, 2 times/wk
     Route: 058
  2. CENTRUM SILVER                     /01292501/ [Concomitant]
     Dosage: UNK
  3. VOLTAREN                           /00372301/ [Concomitant]
     Dosage: 25 mg, UNK
  4. ALLEGRA [Concomitant]
     Dosage: 180 mg, UNK
  5. SIMVASTATIN [Concomitant]
     Dosage: 20 mg, UNK
  6. VITAMIN E                          /00110501/ [Concomitant]
     Dosage: 400 UNK, UNK
  7. LEVOTHYROXIN [Concomitant]
     Dosage: 75 mug, UNK
  8. AMITRIPTYLIN [Concomitant]
     Dosage: 25 mg, UNK

REACTIONS (1)
  - Productive cough [Unknown]
